FAERS Safety Report 16963034 (Version 1)
Quarter: 2019Q4

REPORT INFORMATION
  Report Type: Spontaneous
  Country: US (occurrence: US)
  Receive Date: 20190907
  Receipt Date: 20190907
  Transmission Date: 20200122
  Serious: Yes (Hospitalization)
  Sender: FDA-Public Use
  Company Number: None

PATIENT
  Age: 68 Year
  Sex: Female
  Weight: 51.5 kg

DRUGS (1)
  1. NALOXEGOL OXALATE. [Suspect]
     Active Substance: NALOXEGOL OXALATE
     Dates: end: 20190831

REACTIONS (2)
  - Dyspnoea [None]
  - Cough [None]

NARRATIVE: CASE EVENT DATE: 20190901
